FAERS Safety Report 4935592-7 (Version None)
Quarter: 2006Q1

REPORT INFORMATION
  Report Type: 
  Country: None (occurrence: None)
  Receive Date: 20060307
  Receipt Date: 20051124
  Transmission Date: 20060701
  Serious: Yes (Hospitalization)
  Sender: FDA-Public Use
  Company Number: HQWYE725629NOV05

PATIENT
  Sex: Female

DRUGS (14)
  1. ENBREL [Suspect]
     Indication: RHEUMATOID ARTHRITIS
     Route: 058
     Dates: start: 20050614, end: 20060208
  2. RHEUMATREX [Suspect]
     Indication: RHEUMATOID ARTHRITIS
     Dosage: UNKNOWN
     Route: 048
     Dates: start: 20040514, end: 20060208
  3. BUCILLAMINE [Concomitant]
     Dosage: UNKNOWN, TAB
     Route: 048
     Dates: start: 20010901, end: 20050208
  4. PREDNISOLONE [Concomitant]
     Dates: start: 20040903, end: 20050729
  5. PREDNISOLONE [Concomitant]
     Dates: start: 20050730, end: 20060208
  6. ZALTOPROFEN [Concomitant]
     Dates: end: 20050208
  7. RABEPRAZOLE SODIUM [Concomitant]
     Dates: end: 20060208
  8. MISOPROSTOL [Concomitant]
     Dates: end: 20060208
  9. FOSAMAX [Concomitant]
     Dates: end: 20060208
  10. CEVIMELINE HYDROCHLORIDE [Concomitant]
     Dates: end: 20060208
  11. MENATETRENONE [Concomitant]
  12. BENZODIAZEPINE [Concomitant]
  13. ETIZOLAM [Concomitant]
  14. ISONIAZID [Concomitant]

REACTIONS (3)
  - DYSPHONIA [None]
  - OSTEOMYELITIS [None]
  - PULPITIS DENTAL [None]
